FAERS Safety Report 17154473 (Version 1)
Quarter: 2019Q4

REPORT INFORMATION
  Report Type: Spontaneous
  Country: IT (occurrence: IT)
  Receive Date: 20191213
  Receipt Date: 20191213
  Transmission Date: 20200122
  Serious: Yes (Other)
  Sender: FDA-Public Use
  Company Number: IT-TAKEDA-2019TUS070911

PATIENT
  Sex: Female

DRUGS (1)
  1. BRINTELLIX [Suspect]
     Active Substance: VORTIOXETINE HYDROBROMIDE
     Indication: PRODUCT USED FOR UNKNOWN INDICATION
     Dosage: 10 GTT DROPS, QD
     Route: 065

REACTIONS (5)
  - Delusion [Unknown]
  - Peripheral vascular disorder [Unknown]
  - Metrorrhagia [Unknown]
  - Hallucination [Unknown]
  - Paraesthesia [Unknown]
